FAERS Safety Report 5092378-3 (Version None)
Quarter: 2006Q3

REPORT INFORMATION
  Report Type: 
  Country: None (occurrence: None)
  Receive Date: 20060825
  Receipt Date: 20060811
  Transmission Date: 20061208
  Serious: Yes (Hospitalization, Other)
  Sender: FDA-Public Use
  Company Number: PAR_0746_2006

PATIENT
  Age: 39 Year
  Sex: Male

DRUGS (2)
  1. TRIMETHOPRIM-SULFAMETHOXASOLE DOUBLE-STRENGTH (TMP-SMX) [Suspect]
     Indication: PNEUMOCYSTIS JIROVECI PNEUMONIA
     Dosage: 2 TAB QID
  2. LEVOFLOXACIN [Concomitant]

REACTIONS (14)
  - CATHETER RELATED INFECTION [None]
  - DIALYSIS DEVICE COMPLICATION [None]
  - HAEMODIALYSIS [None]
  - HERPES SIMPLEX [None]
  - HIV TEST POSITIVE [None]
  - HYPERHIDROSIS [None]
  - METABOLIC ACIDOSIS [None]
  - NAUSEA [None]
  - PYREXIA [None]
  - RENAL FAILURE ACUTE [None]
  - RHABDOMYOLYSIS [None]
  - SINUS TACHYCARDIA [None]
  - TACHYPNOEA [None]
  - VOMITING [None]
